FAERS Safety Report 5013168-3 (Version None)
Quarter: 2006Q2

REPORT INFORMATION
  Report Type: 
  Country: None (occurrence: None)
  Receive Date: 20060530
  Receipt Date: 20060309
  Transmission Date: 20061013
  Serious: No
  Sender: FDA-Public Use
  Company Number: US-GLAXOSMITHKLINE-A0597404A

PATIENT
  Sex: Female

DRUGS (2)
  1. WELLBUTRIN XL [Suspect]
     Indication: DRUG USE FOR UNKNOWN INDICATION
  2. HERBAL SUPPLEMENT [Suspect]

REACTIONS (7)
  - DRUG INTERACTION [None]
  - EMOTIONAL DISTRESS [None]
  - FATIGUE [None]
  - FEELING ABNORMAL [None]
  - IMPATIENCE [None]
  - IRRITABILITY [None]
  - PAIN [None]
